FAERS Safety Report 20758204 (Version 3)
Quarter: 2022Q3

REPORT INFORMATION
  Report Type: Spontaneous
  Country: US (occurrence: US)
  Receive Date: 20220427
  Receipt Date: 20220708
  Transmission Date: 20221027
  Serious: Yes (Hospitalization, Other)
  Sender: FDA-Public Use
  Company Number: US-PFIZER INC-202200581560

PATIENT
  Age: 45 Year
  Sex: Female

DRUGS (3)
  1. PEGFILGRASTIM [Suspect]
     Active Substance: PEGFILGRASTIM
     Indication: Invasive ductal breast carcinoma
     Dosage: 6 MG DOSE SUBCUTANEOUS ONCE
     Route: 058
  2. DOXORUBICIN [Concomitant]
     Active Substance: DOXORUBICIN
     Indication: Invasive ductal breast carcinoma
     Dosage: UNK
  3. CYCLOPHOSPHAMIDE [Concomitant]
     Active Substance: CYCLOPHOSPHAMIDE
     Indication: Invasive ductal breast carcinoma
     Dosage: UNK

REACTIONS (1)
  - Acute febrile neutrophilic dermatosis [Recovered/Resolved]
